FAERS Safety Report 15799248 (Version 1)
Quarter: 2019Q1

REPORT INFORMATION
  Report Type: Spontaneous
  Country: US (occurrence: US)
  Receive Date: 20190108
  Receipt Date: 20190108
  Transmission Date: 20190417
  Serious: No
  Sender: FDA-Public Use
  Company Number: US-JAZZ-JPI-P-020578

PATIENT
  Sex: Female

DRUGS (3)
  1. XYREM [Suspect]
     Active Substance: SODIUM OXYBATE
     Indication: SLEEP ATTACKS
     Route: 048
     Dates: start: 20101019
  2. XYREM [Suspect]
     Active Substance: SODIUM OXYBATE
     Dosage: UNK UNKNOWN, SINGLE
     Route: 048
     Dates: end: 20110706
  3. XYREM [Suspect]
     Active Substance: SODIUM OXYBATE
     Dosage: 3 G, BID
     Route: 048
     Dates: start: 20110707

REACTIONS (4)
  - Therapeutic response decreased [Unknown]
  - Blood pressure fluctuation [Unknown]
  - Stress [Unknown]
  - Pain [Unknown]
